FAERS Safety Report 5482050-X (Version None)
Quarter: 2007Q4

REPORT INFORMATION
  Report Type: 
  Country: None (occurrence: None)
  Receive Date: 20071005
  Receipt Date: 20070924
  Transmission Date: 20080405
  Serious: Yes (Death)
  Sender: FDA-Public Use
  Company Number: CERZ-11901

PATIENT

DRUGS (1)
  1. CEREZYME [Suspect]
     Indication: GAUCHER'S DISEASE

REACTIONS (4)
  - ANTIMITOCHONDRIAL ANTIBODY POSITIVE [None]
  - BILIARY CIRRHOSIS PRIMARY [None]
  - HEPATOSPLENOMEGALY [None]
  - PERITONITIS BACTERIAL [None]
